FAERS Safety Report 10147516 (Version 1)
Quarter: 2014Q2

REPORT INFORMATION
  Report Type: Spontaneous
  Country: US (occurrence: US)
  Receive Date: 20140501
  Receipt Date: 20140501
  Transmission Date: 20141212
  Serious: Yes (Other)
  Sender: FDA-Public Use
  Company Number: US-GILEAD-2014-0101183

PATIENT
  Sex: Female

DRUGS (2)
  1. LETAIRIS [Suspect]
     Indication: PRODUCT USED FOR UNKNOWN INDICATION
     Dosage: 10 MG, QD
     Route: 065
     Dates: start: 20131216
  2. SILDENAFIL [Concomitant]

REACTIONS (5)
  - Choking [Unknown]
  - Feeling abnormal [Unknown]
  - Nasal congestion [Unknown]
  - Dyspnoea [Unknown]
  - No therapeutic response [Unknown]
